FAERS Safety Report 15838911 (Version 1)
Quarter: 2019Q1

REPORT INFORMATION
  Report Type: Spontaneous
  Country: US (occurrence: US)
  Receive Date: 20190117
  Receipt Date: 20190117
  Transmission Date: 20190417
  Serious: No
  Sender: FDA-Public Use
  Company Number: US-DUSA PHARMACEUTICALS, INC.-2061361

PATIENT
  Sex: Male

DRUGS (2)
  1. BLU-U LIGHT (BLU-U BLUE LIGHT PHOTODYNAMIC THERAPY ILLUMINATOR) [Suspect]
     Active Substance: DEVICE
  2. LEVULAN KERASTICK [Suspect]
     Active Substance: AMINOLEVULINIC ACID HYDROCHLORIDE
     Indication: PRODUCT USED FOR UNKNOWN INDICATION
     Route: 061

REACTIONS (2)
  - Product package associated injury [Unknown]
  - Product physical issue [Unknown]

NARRATIVE: CASE EVENT DATE: 201811
